FAERS Safety Report 20055917 (Version 1)
Quarter: 2021Q4

REPORT INFORMATION
  Report Type: Report from Study
  Country: CA (occurrence: CA)
  Receive Date: 20211111
  Receipt Date: 20211111
  Transmission Date: 20220303
  Serious: Yes (Other)
  Sender: FDA-Public Use
  Company Number: CA-JNJFOC-20211116762

PATIENT
  Age: 16 Year
  Sex: Male
  Weight: 55.388 kg

DRUGS (1)
  1. REMICADE [Suspect]
     Active Substance: INFLIXIMAB
     Indication: Crohn^s disease
     Route: 042
     Dates: start: 20200420

REACTIONS (4)
  - Ingrowing nail [Unknown]
  - Crohn^s disease [Unknown]
  - Food poisoning [Unknown]
  - Influenza [Unknown]

NARRATIVE: CASE EVENT DATE: 20211018
